FAERS Safety Report 9196036 (Version 1)
Quarter: 2013Q1

REPORT INFORMATION
  Report Type: Report from Study
  Country: CA (occurrence: CA)
  Receive Date: 20130328
  Receipt Date: 20130328
  Transmission Date: 20140127
  Serious: Yes (Hospitalization)
  Sender: FDA-Public Use
  Company Number: CA-JNJFOC-20130311743

PATIENT
  Age: 40 Year
  Sex: Female
  Weight: 104.6 kg

DRUGS (5)
  1. REMICADE [Suspect]
     Indication: CROHN^S DISEASE
     Route: 042
     Dates: start: 201004
  2. IMURAN [Concomitant]
     Route: 065
  3. NEXIUM [Concomitant]
     Route: 065
  4. CLOBAZAM [Concomitant]
     Route: 065
  5. EPIVAL [Concomitant]
     Route: 065

REACTIONS (2)
  - Mental disorder [Unknown]
  - Surgery [Unknown]
